FAERS Safety Report 6871983-5 (Version None)
Quarter: 2010Q3

REPORT INFORMATION
  Report Type: 
  Country: None (occurrence: None)
  Receive Date: 20100723
  Receipt Date: 20100713
  Transmission Date: 20110219
  Serious: Yes (Other)
  Sender: FDA-Public Use
  Company Number: CN-PFIZER INC-2010087503

PATIENT
  Age: 69 Year
  Sex: Female

DRUGS (1)
  1. LIPITOR [Suspect]
     Dosage: 20 MG
     Route: 048
     Dates: start: 20090801, end: 20091201

REACTIONS (3)
  - ELECTROMYOGRAM ABNORMAL [None]
  - MUSCLE ENZYME INCREASED [None]
  - MYALGIA [None]
